FAERS Safety Report 6046094-1 (Version None)
Quarter: 2009Q1

REPORT INFORMATION
  Report Type: 
  Country: None (occurrence: None)
  Receive Date: 20090121
  Receipt Date: 20090121
  Transmission Date: 20090719
  Serious: No
  Sender: FDA-Public Use
  Company Number: None

PATIENT
  Sex: Female
  Weight: 52.1637 kg

DRUGS (1)
  1. BIAXIN XL [Suspect]
     Indication: ACUTE SINUSITIS
     Dates: start: 20081106, end: 20081113

REACTIONS (1)
  - TINNITUS [None]
